FAERS Safety Report 25290045 (Version 1)
Quarter: 2025Q2

REPORT INFORMATION
  Report Type: Spontaneous
  Country: US (occurrence: US)
  Receive Date: 20250509
  Receipt Date: 20250509
  Transmission Date: 20250716
  Serious: Yes (Hospitalization)
  Sender: JOHNSON AND JOHNSON
  Company Number: US-JNJFOC-20250502676

PATIENT
  Sex: Male

DRUGS (1)
  1. CARVYKTI [Suspect]
     Active Substance: CILTACABTAGENE AUTOLEUCEL
     Indication: Plasma cell myeloma
     Route: 065
     Dates: start: 20250424

REACTIONS (3)
  - Cytokine release syndrome [Unknown]
  - Dyspnoea [Unknown]
  - Dyspnoea exertional [Unknown]
